FAERS Safety Report 15501309 (Version 3)
Quarter: 2018Q4

REPORT INFORMATION
  Report Type: Report from Study
  Country: US (occurrence: US)
  Receive Date: 20181015
  Receipt Date: 20181126
  Transmission Date: 20190205
  Serious: No
  Sender: FDA-Public Use
  Company Number: PHEH2018US038768

PATIENT
  Age: 49 Year
  Sex: Female

DRUGS (2)
  1. GILENYA [Suspect]
     Active Substance: FINGOLIMOD HYDROCHLORIDE
     Dosage: 0.5 MG, QD
     Route: 048
     Dates: start: 20180912, end: 20181003
  2. GILENYA [Suspect]
     Active Substance: FINGOLIMOD HYDROCHLORIDE
     Indication: MULTIPLE SCLEROSIS
     Dosage: 0.5 MG, UNK
     Route: 048
     Dates: start: 20180911

REACTIONS (18)
  - Peripheral swelling [Unknown]
  - Heart rate increased [Unknown]
  - Nausea [Recovered/Resolved]
  - Memory impairment [Unknown]
  - Muscle spasms [Unknown]
  - Somnolence [Unknown]
  - Anxiety [Unknown]
  - Nasopharyngitis [Unknown]
  - Nausea [Unknown]
  - Dysphonia [Unknown]
  - Pharyngeal erythema [Unknown]
  - Fatigue [Unknown]
  - Flushing [Unknown]
  - Disorientation [Unknown]
  - Cough [Unknown]
  - Arthralgia [Unknown]
  - Headache [Recovered/Resolved]
  - Back pain [Unknown]

NARRATIVE: CASE EVENT DATE: 201809
